FAERS Safety Report 11936300 (Version 1)
Quarter: 2016Q1

REPORT INFORMATION
  Report Type: Spontaneous
  Country: US (occurrence: US)
  Receive Date: 20160121
  Receipt Date: 20160121
  Transmission Date: 20160526
  Serious: Yes (Death, Other)
  Sender: FDA-Public Use
  Company Number: US-GLAXOSMITHKLINE-US2016GSK007630

PATIENT
  Age: 88 Year
  Sex: Male

DRUGS (1)
  1. ADVAIR HFA [Suspect]
     Active Substance: FLUTICASONE PROPIONATE\SALMETEROL XINAFOATE
     Indication: CHRONIC OBSTRUCTIVE PULMONARY DISEASE

REACTIONS (5)
  - Renal disorder [Unknown]
  - Death [Fatal]
  - Cardiac failure congestive [Unknown]
  - Atrioventricular block [Unknown]
  - Rehabilitation therapy [Unknown]

NARRATIVE: CASE EVENT DATE: 20151002
